FAERS Safety Report 19932224 (Version 1)
Quarter: 2021Q4

REPORT INFORMATION
  Report Type: Spontaneous
  Country: US (occurrence: US)
  Receive Date: 20211008
  Receipt Date: 20211008
  Transmission Date: 20220303
  Serious: No
  Sender: FDA-Public Use
  Company Number: US-GSKCCFUS-CASE-01182262_AE-69215

PATIENT
  Sex: Male

DRUGS (2)
  1. NUCALA [Suspect]
     Active Substance: MEPOLIZUMAB
     Indication: Nasal polyps
     Dosage: 1 DF
     Dates: start: 20210825
  2. NUCALA [Suspect]
     Active Substance: MEPOLIZUMAB
     Indication: Nasal congestion

REACTIONS (1)
  - Drug ineffective [Unknown]
